FAERS Safety Report 5827344-0 (Version None)
Quarter: 2008Q3

REPORT INFORMATION
  Report Type: 
  Country: None (occurrence: None)
  Receive Date: 20080724
  Receipt Date: 20080714
  Transmission Date: 20090109
  Serious: Yes (Other)
  Sender: FDA-Public Use
  Company Number: 100#08#2008-03672

PATIENT
  Age: 29 Year
  Sex: Female

DRUGS (7)
  1. METHOTREXATE [Suspect]
     Indication: ACUTE LYMPHOCYTIC LEUKAEMIA
     Dosage: INTRATHECAL
     Route: 037
  2. VINCRISTINE [Suspect]
     Indication: ACUTE LYMPHOCYTIC LEUKAEMIA
  3. IDARUBICIN HCL [Suspect]
     Indication: ACUTE LYMPHOCYTIC LEUKAEMIA
  4. L-ASPARAGINASE (L-ASPARAGINASE) [Suspect]
     Indication: ACUTE LYMPHOCYTIC LEUKAEMIA
  5. PREDNISOLONE TAB [Suspect]
     Indication: ACUTE LYMPHOCYTIC LEUKAEMIA
  6. CYTOSINE ARABINOSIDE (CYTOSINE ARABINOSIDE) [Suspect]
     Indication: ACUTE LYMPHOCYTIC LEUKAEMIA
  7. VEPESID [Suspect]
     Indication: ACUTE LYMPHOCYTIC LEUKAEMIA

REACTIONS (2)
  - CENTRAL NERVOUS SYSTEM LEUKAEMIA [None]
  - PANNICULITIS [None]
